FAERS Safety Report 9552381 (Version 2)
Quarter: 2013Q4

REPORT INFORMATION
  Report Type: Report from Study
  Country: FR (occurrence: FR)
  Receive Date: 20130925
  Receipt Date: 20131009
  Transmission Date: 20140711
  Serious: Yes (Death, Other)
  Sender: FDA-Public Use
  Company Number: FR-ASTELLAS-2013EU008099

PATIENT
  Age: 65 Year
  Sex: Male

DRUGS (2)
  1. ENZALUTAMIDE [Suspect]
     Indication: PROSTATE CANCER
     Dosage: UNK MG, UID/QD
     Route: 065
  2. OXYCONTIN [Concomitant]
     Indication: PAIN
     Dosage: 80 MG, BID
     Route: 048
     Dates: start: 201209

REACTIONS (5)
  - Death [Fatal]
  - General physical health deterioration [Unknown]
  - Bone pain [Unknown]
  - Dysphagia [Unknown]
  - Product size issue [Unknown]
